FAERS Safety Report 8495895-9 (Version None)
Quarter: 2012Q3

REPORT INFORMATION
  Report Type: 
  Country: None (occurrence: None)
  Receive Date: 20120709
  Receipt Date: 20120705
  Transmission Date: 20120928
  Serious: Yes (Hospitalization, Other)
  Sender: FDA-Public Use
  Company Number: PHHY2011US68608

PATIENT
  Sex: Female
  Weight: 90.703 kg

DRUGS (17)
  1. HYDROCHLOROTHIAZIDE [Concomitant]
     Indication: HYPERTENSION
     Dosage: 25 (1/2) MG, QD
     Route: 048
  2. TRAZODONE HCL [Concomitant]
     Dosage: 50 MG, QHS
     Route: 048
  3. ERGOCALCIFEROL [Concomitant]
     Dosage: 50000 U, QW2
     Route: 048
  4. SYNTHROID [Concomitant]
     Indication: HYPOTHYROIDISM
     Dosage: 100 UG, QD
     Route: 048
  5. PROMETRIUM [Concomitant]
     Indication: MENOPAUSE
     Dosage: 200 MG, QD
     Route: 048
  6. REBIF [Concomitant]
     Indication: MULTIPLE SCLEROSIS
     Dosage: 44 UG, QOD
  7. BACLOFEN [Concomitant]
     Indication: MULTIPLE SCLEROSIS
     Dosage: 10 MG, Q6H
     Route: 048
  8. IMITREX [Concomitant]
     Indication: HEADACHE
     Dosage: UNK UKN, PRN
  9. TREXIMET [Concomitant]
     Indication: MIGRAINE
     Dosage: UNK UKN, UNK
  10. GILENYA [Suspect]
     Indication: MULTIPLE SCLEROSIS
     Dosage: 0.5 MG, QD
     Route: 048
     Dates: start: 20110621, end: 20120702
  11. WELLBUTRIN XL [Concomitant]
     Indication: FIBROMYALGIA
     Dosage: 300 MG, QD
     Route: 048
  12. ZOCOR [Concomitant]
     Indication: HYPERLIPIDAEMIA
     Dosage: 20 MG, QD
     Route: 048
  13. ADDERALL 5 [Concomitant]
     Indication: ATTENTION DEFICIT/HYPERACTIVITY DISORDER
     Dosage: 5 MG, QHS
     Route: 048
  14. METOPROLOL [Concomitant]
     Indication: HYPERTENSION
     Dosage: 50 (1/2) MG, BID
     Route: 048
  15. TESTOSTERONE [Concomitant]
     Indication: MENOPAUSE
     Dosage: 2 MG, QD
     Route: 061
  16. NEURONTIN [Concomitant]
     Indication: MULTIPLE SCLEROSIS
     Dosage: 600 MG, QID
     Route: 048
  17. ADDERALL XR 10 [Concomitant]
     Indication: ATTENTION DEFICIT/HYPERACTIVITY DISORDER
     Dosage: UNK DF, Q4H
     Route: 048

REACTIONS (8)
  - HYPOKALAEMIA [None]
  - SOMNOLENCE [None]
  - HOT FLUSH [None]
  - DIZZINESS [None]
  - CHEST PAIN [None]
  - DYSPNOEA [None]
  - CHEST DISCOMFORT [None]
  - MIGRAINE [None]
